FAERS Safety Report 13575884 (Version 1)
Quarter: 2017Q2

REPORT INFORMATION
  Report Type: Spontaneous
  Country: US (occurrence: US)
  Receive Date: 20170523
  Receipt Date: 20170523
  Transmission Date: 20170830
  Serious: Yes (Life-Threatening, Hospitalization, Other)
  Sender: FDA-Public Use
  Company Number: None

PATIENT
  Age: 64 Year
  Sex: Female
  Weight: 90 kg

DRUGS (8)
  1. ELIQUIS [Concomitant]
     Active Substance: APIXABAN
  2. TYLENOL [Concomitant]
     Active Substance: ACETAMINOPHEN
  3. HYDROCHLOROTHIAZIDE. [Concomitant]
     Active Substance: HYDROCHLOROTHIAZIDE
  4. MELOXICAM. [Concomitant]
     Active Substance: MELOXICAM
  5. AMIODARONE HYDROCHLOIRDE [Concomitant]
  6. ATIVAN [Concomitant]
     Active Substance: LORAZEPAM
  7. DILTIAZEM HYDROCHLORIDE. [Concomitant]
     Active Substance: DILTIAZEM HYDROCHLORIDE
  8. SERTRALINE HYDROCHLORIDE. [Suspect]
     Active Substance: SERTRALINE HYDROCHLORIDE
     Indication: DEPRESSION
     Dosage: ?          QUANTITY:1 TABLET(S);?
     Route: 048
     Dates: start: 20170518, end: 20170518

REACTIONS (4)
  - Loss of consciousness [None]
  - Head injury [None]
  - Fall [None]
  - Atrial fibrillation [None]

NARRATIVE: CASE EVENT DATE: 20170316
